FAERS Safety Report 12956067 (Version 1)
Quarter: 2016Q4

REPORT INFORMATION
  Report Type: Spontaneous
  Country: US (occurrence: US)
  Receive Date: 20161118
  Receipt Date: 20161118
  Transmission Date: 20170207
  Serious: No
  Sender: FDA-Public Use
  Company Number: US-JNJFOC-20161011802

PATIENT

DRUGS (1)
  1. TYLENOL EXTRA STRENGTH [Suspect]
     Active Substance: ACETAMINOPHEN
     Indication: ARTHRALGIA
     Dosage: ONE AND A HALF CAPLETS AT A TIME
     Route: 048
     Dates: start: 20161009

REACTIONS (3)
  - Hypersomnia [Unknown]
  - Wrong technique in product usage process [Unknown]
  - Fatigue [Unknown]

NARRATIVE: CASE EVENT DATE: 20161009
